FAERS Safety Report 10286018 (Version 1)
Quarter: 2014Q3

REPORT INFORMATION
  Report Type: Spontaneous
  Country: US (occurrence: None)
  Receive Date: 20140703
  Receipt Date: 20140703
  Transmission Date: 20150326
  Serious: No
  Sender: FDA-Public Use
  Company Number: None

PATIENT
  Age: 57 Year
  Sex: Male
  Weight: 77.11 kg

DRUGS (2)
  1. VIAGRA [Suspect]
     Active Substance: SILDENAFIL CITRATE
     Indication: PROSTATIC OPERATION
     Dosage: 1 PILL
     Route: 048
     Dates: start: 20140702, end: 20140702
  2. VIAGRA [Suspect]
     Active Substance: SILDENAFIL CITRATE
     Indication: ERECTILE DYSFUNCTION
     Dosage: 1 PILL
     Route: 048
     Dates: start: 20140702, end: 20140702

REACTIONS (1)
  - Headache [None]

NARRATIVE: CASE EVENT DATE: 20140702
